FAERS Safety Report 8339334-7 (Version None)
Quarter: 2012Q2

REPORT INFORMATION
  Report Type: 
  Country: None (occurrence: None)
  Receive Date: 20120507
  Receipt Date: 20120425
  Transmission Date: 20120825
  Serious: Yes (Other)
  Sender: FDA-Public Use
  Company Number: US-JNJFOC-20120412355

PATIENT
  Sex: Female
  Weight: 97.52 kg

DRUGS (8)
  1. REMICADE [Suspect]
     Indication: PSORIATIC ARTHROPATHY
     Route: 042
  2. ALL OTHER THERAPEUTICS [Concomitant]
     Indication: DIABETES MELLITUS
     Route: 065
  3. UNSPECIFIED CHOLESTEROL MEDICATION [Suspect]
     Indication: BLOOD CHOLESTEROL INCREASED
     Route: 065
     Dates: start: 20080101, end: 20111201
  4. LORATADINE [Concomitant]
     Indication: SEASONAL ALLERGY
     Route: 048
  5. VIOXX [Concomitant]
     Indication: OSTEOARTHRITIS
     Route: 065
  6. CELEBREX [Concomitant]
     Indication: OSTEOARTHRITIS
     Route: 048
  7. LIPITOR [Concomitant]
     Indication: BLOOD CHOLESTEROL INCREASED
     Route: 065
  8. ACETAMINOPHEN [Concomitant]
     Route: 065

REACTIONS (4)
  - HYPERCHOLESTEROLAEMIA [None]
  - HEPATIC STEATOSIS [None]
  - FUNGAL INFECTION [None]
  - CONTUSION [None]
